FAERS Safety Report 4528231-0 (Version None)
Quarter: 2004Q4

REPORT INFORMATION
  Report Type: 
  Country: None (occurrence: None)
  Receive Date: 20041130
  Receipt Date: 20040919
  Transmission Date: 20050328
  Serious: No
  Sender: FDA-Public Use
  Company Number: 702122

PATIENT
  Age: 64 Year
  Sex: Female

DRUGS (5)
  1. AMEVIVE [Suspect]
     Dates: start: 20040101, end: 20040418
  2. MEDROL [Concomitant]
  3. ULTRACET [Concomitant]
  4. MULTI-VITAMINS [Concomitant]
  5. HALCION [Concomitant]

REACTIONS (1)
  - OEDEMA PERIPHERAL [None]
